FAERS Safety Report 24960823 (Version 1)
Quarter: 2025Q1

REPORT INFORMATION
  Report Type: Spontaneous
  Country: US (occurrence: None)
  Receive Date: 20250211
  Receipt Date: 20250211
  Transmission Date: 20250409
  Serious: Yes (Other)
  Sender: FDA-CTU
  Company Number: None

PATIENT
  Age: 30 Year
  Sex: Male
  Weight: 78.75 kg

DRUGS (1)
  1. TAVNEOS [Suspect]
     Active Substance: AVACOPAN
     Indication: Granulomatosis with polyangiitis
     Dosage: FREQUENCY : TWICE A DAY;?
     Route: 048
     Dates: start: 20220620, end: 20250125

REACTIONS (6)
  - End stage renal disease [None]
  - Glomerulonephritis rapidly progressive [None]
  - Neuropathy peripheral [None]
  - Azotaemia [None]
  - Blastomycosis [None]
  - Granuloma [None]
